FAERS Safety Report 8846164 (Version 3)
Quarter: 2012Q4

REPORT INFORMATION
  Report Type: Report from Study
  Country: JP (occurrence: JP)
  Receive Date: 20121017
  Receipt Date: 20121212
  Transmission Date: 20130627
  Serious: Yes (Hospitalization, Other)
  Sender: FDA-Public Use
  Company Number: PHHY2012JP091703

PATIENT
  Age: 74 Year
  Sex: Female

DRUGS (1)
  1. ALISKIREN [Suspect]
     Indication: HYPERTENSION
     Dosage: 150 mg, QD
     Route: 048
     Dates: start: 20110418, end: 20120216

REACTIONS (2)
  - Lymphoma [Recovering/Resolving]
  - Anaemia of malignant disease [Recovered/Resolved]
